FAERS Safety Report 7485891-2 (Version None)
Quarter: 2011Q2

REPORT INFORMATION
  Report Type: 
  Country: None (occurrence: None)
  Receive Date: 20110517
  Receipt Date: 20110202
  Transmission Date: 20111010
  Serious: Yes (Other)
  Sender: FDA-Public Use
  Company Number: US-BAYER-2010-005892

PATIENT
  Age: 36 Year
  Sex: Female
  Weight: 67.12 kg

DRUGS (3)
  1. BEYAZ [Suspect]
     Indication: HEADACHE
  2. BEYAZ [Suspect]
     Indication: CONTRACEPTION
     Dosage: UNK
     Dates: start: 20101120, end: 20101208
  3. ORTHO TRI-CYCLEN LO [Concomitant]
     Indication: PRODUCT USED FOR UNKNOWN INDICATION
     Dosage: UNK
     Dates: end: 20101101

REACTIONS (1)
  - THROMBOPHLEBITIS SUPERFICIAL [None]
